FAERS Safety Report 16265155 (Version 8)
Quarter: 2023Q4

REPORT INFORMATION
  Report Type: Spontaneous
  Country: JP (occurrence: None)
  Receive Date: 20190502
  Receipt Date: 20231215
  Transmission Date: 20240109
  Serious: Yes (Life-Threatening, Hospitalization, Other)
  Sender: FDA-Public Use
  Company Number: 2019SE64756

PATIENT
  Age: 764 Month
  Sex: Male
  Weight: 91 kg

DRUGS (5)
  1. DAPAGLIFLOZIN [Suspect]
     Active Substance: DAPAGLIFLOZIN
     Indication: Type 2 diabetes mellitus
     Route: 048
     Dates: start: 201810, end: 20190412
  2. PITAVASTATIN CALCIUM [Concomitant]
     Active Substance: PITAVASTATIN CALCIUM
     Indication: Dyslipidaemia
     Route: 048
  3. NICORANDIL [Concomitant]
     Active Substance: NICORANDIL
  4. PRASUGREL HYDROCHLORIDE [Concomitant]
     Active Substance: PRASUGREL HYDROCHLORIDE
  5. PRASUGREL HYDROCHLORIDE [Concomitant]
     Active Substance: PRASUGREL HYDROCHLORIDE

REACTIONS (8)
  - Prinzmetal angina [Recovered/Resolved]
  - Atrial fibrillation [Not Recovered/Not Resolved]
  - Road traffic accident [Recovered/Resolved]
  - Hypertension [Recovering/Resolving]
  - Hyperventilation [Recovering/Resolving]
  - Syncope [Unknown]
  - Euglycaemic diabetic ketoacidosis [Recovered/Resolved]
  - Arteriosclerosis coronary artery [Unknown]

NARRATIVE: CASE EVENT DATE: 20190301
